FAERS Safety Report 7592359-1 (Version None)
Quarter: 2011Q3

REPORT INFORMATION
  Report Type: 
  Country: None (occurrence: None)
  Receive Date: 20110706
  Receipt Date: 20110624
  Transmission Date: 20111222
  Serious: Yes (Hospitalization, Other)
  Sender: FDA-Public Use
  Company Number: FR-JNJFOC-20110612785

PATIENT
  Age: 22 Year
  Sex: Male

DRUGS (4)
  1. RISPERDAL [Suspect]
     Indication: SCHIZOPHRENIA
     Dosage: INITIATED AFTER 17-APR-2010
     Route: 048
  2. RISPERDAL CONSTA [Suspect]
     Dosage: 2 INJECTIONS OF 50 MG OR 1 INJECTION OF 75 MG PLUS 1 INJECTION OF 25  MG
     Route: 030
     Dates: start: 20100101
  3. RISPERDAL CONSTA [Suspect]
     Indication: SCHIZOPHRENIA
     Route: 030
     Dates: end: 20100101
  4. DEPAMIDE [Concomitant]
     Route: 065

REACTIONS (4)
  - THERAPEUTIC RESPONSE DECREASED [None]
  - SCHIZOPHRENIA [None]
  - OVERDOSE [None]
  - HOMICIDE [None]
